FAERS Safety Report 6518172-1 (Version None)
Quarter: 2009Q4

REPORT INFORMATION
  Report Type: 
  Country: None (occurrence: None)
  Receive Date: 20091224
  Receipt Date: 20091221
  Transmission Date: 20100525
  Serious: Yes (Death)
  Sender: FDA-Public Use
  Company Number: CA-CELGENEUS-028-21880-09090487

PATIENT
  Sex: Male

DRUGS (3)
  1. REVLIMID [Suspect]
     Indication: MULTIPLE MYELOMA
     Route: 048
     Dates: start: 20090814, end: 20090827
  2. WHOLE BLOOD [Concomitant]
     Indication: DRUG USE FOR UNKNOWN INDICATION
     Dosage: 2 UNITS
     Route: 051
     Dates: start: 20090827, end: 20090827
  3. WHOLE BLOOD [Concomitant]
     Dosage: 2 UNITS
     Route: 051
     Dates: start: 20090717, end: 20090717

REACTIONS (1)
  - RENAL FAILURE ACUTE [None]
